FAERS Safety Report 21515999 (Version 3)
Quarter: 2022Q4

REPORT INFORMATION
  Report Type: Spontaneous
  Country: US (occurrence: None)
  Receive Date: 20221027
  Receipt Date: 20221102
  Transmission Date: 20230113
  Serious: Yes (Hospitalization)
  Sender: FDA-Public Use
  Company Number: US-ROCHE-3208160

PATIENT
  Sex: Female

DRUGS (1)
  1. XOLAIR [Suspect]
     Active Substance: OMALIZUMAB
     Indication: Urticaria
     Dosage: VIAL
     Route: 058
     Dates: start: 202106

REACTIONS (4)
  - Off label use [Unknown]
  - Back pain [Unknown]
  - Abdominal pain [Unknown]
  - Vision blurred [Unknown]
